FAERS Safety Report 15617237 (Version 2)
Quarter: 2019Q1

REPORT INFORMATION
  Report Type: Report from Study
  Country: US (occurrence: US)
  Receive Date: 20181114
  Receipt Date: 20190125
  Transmission Date: 20190417
  Serious: Yes (Hospitalization, Other)
  Sender: FDA-Public Use
  Company Number: US-TAKEDA-2018TUS032125

PATIENT
  Age: 56 Year
  Sex: Male

DRUGS (3)
  1. PONATINIB [Suspect]
     Active Substance: PONATINIB
     Indication: CHRONIC MYELOID LEUKAEMIA
     Dosage: 45 MG, QD
     Route: 048
     Dates: start: 20140514
  2. PONATINIB [Suspect]
     Active Substance: PONATINIB
     Dosage: 15 MG, QD
     Route: 048
  3. PONATINIB [Suspect]
     Active Substance: PONATINIB
     Dosage: 45 MG, QD
     Route: 048

REACTIONS (11)
  - Anaemia [Unknown]
  - Alopecia [Unknown]
  - Decreased appetite [Unknown]
  - Fibula fracture [Unknown]
  - Abdominal pain [Unknown]
  - Blood pressure diastolic increased [Unknown]
  - Tibia fracture [Unknown]
  - Platelet count increased [Unknown]
  - Fatigue [Unknown]
  - Road traffic accident [Unknown]
  - White blood cell count increased [Unknown]

NARRATIVE: CASE EVENT DATE: 201807
